FAERS Safety Report 15729453 (Version 1)
Quarter: 2018Q4

REPORT INFORMATION
  Report Type: Spontaneous
  Country: FR (occurrence: FR)
  Receive Date: 20181217
  Receipt Date: 20181217
  Transmission Date: 20190205
  Serious: Yes (Life-Threatening, Hospitalization, Other)
  Sender: FDA-Public Use
  Company Number: FR-PFIZER INC-2018513478

PATIENT
  Age: 46 Year
  Sex: Female

DRUGS (5)
  1. PRAZEPAM [Suspect]
     Active Substance: PRAZEPAM
     Dosage: 200 MG, UNK
     Route: 048
     Dates: start: 20171223, end: 20171223
  2. THERALENE [Suspect]
     Active Substance: TRIMEPRAZINE
     Dosage: 70 MG, UNK
     Route: 048
     Dates: start: 20171223, end: 20171223
  3. LAROXYL [Suspect]
     Active Substance: AMITRIPTYLINE HYDROCHLORIDE
     Dosage: 1600 MG, UNK
     Route: 048
     Dates: start: 20171223, end: 20171223
  4. LYRICA [Suspect]
     Active Substance: PREGABALIN
     Dosage: 375 MG, UNK
     Route: 048
     Dates: start: 20171223, end: 20171223
  5. THIOCOLCHICOSIDE [Suspect]
     Active Substance: THIOCOLCHICOSIDE
     Dosage: 48 MG, UNK
     Route: 048
     Dates: start: 20171223, end: 20171223

REACTIONS (2)
  - Coma [Recovered/Resolved]
  - Poisoning deliberate [Recovered/Resolved]

NARRATIVE: CASE EVENT DATE: 20171223
